FAERS Safety Report 24718651 (Version 1)
Quarter: 2024Q4

REPORT INFORMATION
  Report Type: Spontaneous
  Country: RS (occurrence: RS)
  Receive Date: 20241210
  Receipt Date: 20241210
  Transmission Date: 20250115
  Serious: Yes (Other)
  Sender: ALEXION PHARMACEUTICALS
  Company Number: RS-ASTRAZENECA-202412BKN005223RS

PATIENT

DRUGS (22)
  1. SYMBICORT [Suspect]
     Active Substance: BUDESONIDE\FORMOTEROL FUMARATE DIHYDRATE
     Dosage: T 320/9 2X1 INHALATION PLUS, IF NECESSARY, ANOTHER 1-2 INHALATIONS  DURING 24 HOURS
  2. SYMBICORT [Suspect]
     Active Substance: BUDESONIDE\FORMOTEROL FUMARATE DIHYDRATE
     Dosage: T 320/9 2X1 INHALATION PLUS, IF NECESSARY, ANOTHER 1-2 INHALATIONS  DURING 24 HOURS
  3. SYMBICORT [Suspect]
     Active Substance: BUDESONIDE\FORMOTEROL FUMARATE DIHYDRATE
     Dosage: T 320/9 2X1 INHALATION PLUS, IF NECESSARY, ANOTHER 1-2 INHALATIONS  DURING 24 HOURS
  4. SYMBICORT [Suspect]
     Active Substance: BUDESONIDE\FORMOTEROL FUMARATE DIHYDRATE
     Dosage: T 320/9 2X1 INHALATION PLUS, IF NECESSARY, ANOTHER 1-2 INHALATIONS  DURING 24 HOURS
  5. OXIS [Suspect]
     Active Substance: FORMOTEROL FUMARATE
     Dosage: UNK
     Route: 065
  6. OXIS [Suspect]
     Active Substance: FORMOTEROL FUMARATE
     Dosage: UNK
     Route: 065
  7. OXIS [Suspect]
     Active Substance: FORMOTEROL FUMARATE
     Dosage: UNK
     Route: 065
  8. OXIS [Suspect]
     Active Substance: FORMOTEROL FUMARATE
     Dosage: UNK
     Route: 065
  9. PULMICORT TURBUHALER [Suspect]
     Active Substance: BUDESONIDE
     Dosage: 0.5MG/ML IN 5ML FR EVERY 12H ALTERNATELY THROUGH THE MOUTH  AND THROUGH THE NOSE
  10. PULMICORT TURBUHALER [Suspect]
     Active Substance: BUDESONIDE
     Dosage: 0.5MG/ML IN 5ML FR EVERY 12H ALTERNATELY THROUGH THE MOUTH  AND THROUGH THE NOSE
  11. PULMICORT TURBUHALER [Suspect]
     Active Substance: BUDESONIDE
     Dosage: 0.5MG/ML IN 5ML FR EVERY 12H ALTERNATELY THROUGH THE MOUTH  AND THROUGH THE NOSE
  12. PULMICORT TURBUHALER [Suspect]
     Active Substance: BUDESONIDE
     Dosage: 0.5MG/ML IN 5ML FR EVERY 12H ALTERNATELY THROUGH THE MOUTH  AND THROUGH THE NOSE
  13. DEXAMETHASONE [Concomitant]
     Active Substance: DEXAMETHASONE
     Dosage: 0.5 MG 2X2 FOR THREE DAYS, 2X1 FOR THE NEXT THREE DAYS,  1X1 FIVE DAYS, 1 EVERY SECOND DAY FOR THE N
  14. DESLORATADINE ALVOGEN [Concomitant]
     Dosage: 5 MILLIGRAM, BID
  15. MONTELUKAST [Concomitant]
     Active Substance: MONTELUKAST
     Dosage: 10 MILLIGRAM, QD
  16. FENOTEROL [Concomitant]
     Active Substance: FENOTEROL
  17. FENOTEROL [Concomitant]
     Active Substance: FENOTEROL
  18. Sabax ipratropium bromide [Concomitant]
     Dosage: 10-15 DROPS IN 5ML FR EVERY 4-6- 8H
  19. Sabax ipratropium bromide [Concomitant]
     Dosage: 10-15 DROPS IN 5ML FR EVERY 4-6- 8H
  20. BECLOMETHASONE [Concomitant]
     Active Substance: BECLOMETHASONE
     Dosage: 6/100 2X2,
  21. PREDNISONE [Concomitant]
     Active Substance: PREDNISONE
     Dosage: 20MG 0+1 FOR SEVEN DAYS THEN 0+1/2 EVERY SECOND DAY FOR 2 WEEKS
  22. LEVOCETIRIZINE [Concomitant]
     Active Substance: LEVOCETIRIZINE
     Dosage: 5 MILLIGRAM, QD

REACTIONS (6)
  - Asphyxia [Recovered/Resolved]
  - Asthma [Unknown]
  - Nasal congestion [Unknown]
  - Fatigue [Unknown]
  - Gait disturbance [Unknown]
  - Dyspnoea [Unknown]
